FAERS Safety Report 8209069-X (Version None)
Quarter: 2012Q1

REPORT INFORMATION
  Report Type: 
  Country: None (occurrence: None)
  Receive Date: 20120314
  Receipt Date: 20120306
  Transmission Date: 20120608
  Serious: Yes (Hospitalization)
  Sender: FDA-Public Use
  Company Number: JP-NOVOPROD-336322

PATIENT
  Age: 51 Year
  Sex: Female
  Weight: 59 kg

DRUGS (8)
  1. VICTOZA [Suspect]
     Dosage: 0.6 MG, QD
     Route: 058
     Dates: start: 20101222
  2. VICTOZA [Suspect]
     Dosage: 0.9 MG, QD
     Route: 058
     Dates: start: 20110105
  3. BEZATOL [Concomitant]
     Dosage: 200 MG, QD
     Route: 048
     Dates: start: 20080731
  4. ZETIA [Concomitant]
     Dosage: 10 MG, QD
     Route: 048
     Dates: start: 20110330
  5. METGLUCON [Concomitant]
     Dosage: 1000 MG, QD
     Route: 048
     Dates: start: 20100401
  6. AMARYL [Concomitant]
     Dosage: 1.5 MG, QD
     Route: 048
     Dates: start: 20101205
  7. LANSOPRAZOLE [Concomitant]
     Dosage: UNK
     Route: 048
  8. VICTOZA [Suspect]
     Indication: TYPE 2 DIABETES MELLITUS
     Dosage: 0.3 MG, QD
     Route: 058
     Dates: start: 20101208

REACTIONS (7)
  - EATING DISORDER [None]
  - BLOOD GLUCOSE FLUCTUATION [None]
  - SUICIDE ATTEMPT [None]
  - INTENTIONAL OVERDOSE [None]
  - VOMITING [None]
  - GASTROINTESTINAL DISORDER [None]
  - NAUSEA [None]
